FAERS Safety Report 8199158-0 (Version None)
Quarter: 2012Q1

REPORT INFORMATION
  Report Type: 
  Country: None (occurrence: None)
  Receive Date: 20120309
  Receipt Date: 20120306
  Transmission Date: 20120608
  Serious: Yes (Other)
  Sender: FDA-Public Use
  Company Number: CA-PFIZER INC-2012004453

PATIENT
  Age: 46 Year
  Sex: Female
  Weight: 67.12 kg

DRUGS (5)
  1. VARENICLINE TARTRATE [Suspect]
     Indication: SMOKING CESSATION THERAPY
     Dosage: UNK
     Dates: start: 20111201
  2. ESCITALOPRAM [Concomitant]
     Dosage: 20 MG, DAILY
  3. VITAMIN B COMPLEX CAP [Concomitant]
     Dosage: DAILY
  4. CITALOPRAM [Concomitant]
     Dosage: UNK
  5. LOVAZA [Concomitant]
     Dosage: DAILY

REACTIONS (6)
  - PAIN [None]
  - HYPOAESTHESIA [None]
  - MIGRAINE [None]
  - DEPRESSED MOOD [None]
  - DYSPNOEA [None]
  - EMOTIONAL POVERTY [None]
